FAERS Safety Report 24904792 (Version 1)
Quarter: 2025Q1

REPORT INFORMATION
  Report Type: Spontaneous
  Country: DK (occurrence: DK)
  Receive Date: 20250130
  Receipt Date: 20250130
  Transmission Date: 20250408
  Serious: Yes (Hospitalization, Other)
  Sender: TEVA
  Company Number: DK-TEVA-VS-3290286

PATIENT
  Sex: Female

DRUGS (16)
  1. MOXIFLOXACIN [Suspect]
     Active Substance: MOXIFLOXACIN
     Indication: Tuberculosis
     Route: 065
  2. SULFAMETHOXAZOLE [Concomitant]
     Active Substance: SULFAMETHOXAZOLE
     Indication: Prophylaxis
     Route: 065
  3. LINEZOLID [Suspect]
     Active Substance: LINEZOLID
     Indication: Tuberculosis
     Route: 065
  4. CLARITHROMYCIN [Suspect]
     Active Substance: CLARITHROMYCIN
     Indication: Mycobacterium avium complex infection
     Route: 065
  5. RIFABUTIN [Suspect]
     Active Substance: RIFABUTIN
     Indication: Tuberculosis
     Route: 065
  6. PYRAZINAMIDE [Suspect]
     Active Substance: PYRAZINAMIDE
     Indication: Tuberculosis
     Route: 065
  7. EFAVIRENZ [Suspect]
     Active Substance: EFAVIRENZ
     Indication: HIV infection
     Route: 065
  8. DOLUTEGRAVIR [Suspect]
     Active Substance: DOLUTEGRAVIR
     Indication: HIV infection
     Route: 065
  9. TRIMETHOPRIM [Concomitant]
     Active Substance: TRIMETHOPRIM
     Indication: Prophylaxis
     Route: 065
  10. RIFAMPIN [Suspect]
     Active Substance: RIFAMPIN
     Indication: Tuberculosis
     Route: 065
  11. CAPREOMYCIN [Suspect]
     Active Substance: CAPREOMYCIN
     Indication: Tuberculosis
     Route: 042
  12. PROTIONAMIDE [Suspect]
     Active Substance: PROTIONAMIDE
     Indication: Mycobacterium avium complex infection
     Route: 065
  13. LAMIVUDINE [Suspect]
     Active Substance: LAMIVUDINE
     Indication: HIV infection
     Route: 065
  14. TENOFOVIR DISOPROXIL [Suspect]
     Active Substance: TENOFOVIR DISOPROXIL
     Indication: HIV infection
     Route: 065
  15. ETHAMBUTOL [Suspect]
     Active Substance: ETHAMBUTOL HYDROCHLORIDE
     Indication: Tuberculosis
     Route: 065
  16. FLUCONAZOLE [Suspect]
     Active Substance: FLUCONAZOLE
     Indication: Oral candidiasis
     Route: 065

REACTIONS (10)
  - Neuropsychological symptoms [Recovered/Resolved]
  - Renal impairment [Recovered/Resolved]
  - Paradoxical drug reaction [Recovered/Resolved]
  - Vomiting [Recovered/Resolved]
  - Diplopia [Recovered/Resolved]
  - Drug ineffective [Unknown]
  - Dehydration [Recovered/Resolved]
  - Hepatic function abnormal [Recovered/Resolved]
  - Nausea [Recovered/Resolved]
  - Immune reconstitution inflammatory syndrome associated tuberculosis [Recovered/Resolved]
